FAERS Safety Report 9321036 (Version 1)
Quarter: 2013Q2

REPORT INFORMATION
  Report Type: Spontaneous
  Country: US (occurrence: US)
  Receive Date: 20130531
  Receipt Date: 20130531
  Transmission Date: 20140414
  Serious: No
  Sender: FDA-Public Use
  Company Number: US-PFIZER INC-2013164910

PATIENT
  Age: 56 Year
  Sex: Female
  Weight: 68.03 kg

DRUGS (2)
  1. LYRICA [Suspect]
     Indication: FIBROMYALGIA
     Dosage: 75 MG, 2X/DAY
     Route: 048
     Dates: start: 200903
  2. NAPRELAN [Concomitant]
     Indication: ARTHRALGIA
     Dosage: UNK

REACTIONS (5)
  - Blood cholesterol increased [Unknown]
  - Blood pressure increased [Unknown]
  - Heart rate increased [Unknown]
  - Burning sensation [Unknown]
  - Body temperature increased [Unknown]
